FAERS Safety Report 21767057 (Version 1)
Quarter: 2022Q4

REPORT INFORMATION
  Report Type: Spontaneous
  Country: IT (occurrence: IT)
  Receive Date: 20221222
  Receipt Date: 20221222
  Transmission Date: 20230113
  Serious: Yes (Life-Threatening, Hospitalization)
  Sender: FDA-Public Use
  Company Number: IT-CMP PHARMA-2022CMP00043

PATIENT
  Age: 15 Year
  Sex: Female
  Weight: 70 kg

DRUGS (2)
  1. ISONIAZID [Suspect]
     Active Substance: ISONIAZID
     Dosage: 30 G
  2. RIFAMPIN [Suspect]
     Active Substance: RIFAMPIN
     Dosage: 2400 MG

REACTIONS (5)
  - Suicide attempt [Recovered/Resolved]
  - Bezoar [Recovered/Resolved]
  - Sinus tachycardia [Recovered/Resolved]
  - Seizure [Recovered/Resolved]
  - Intentional overdose [Recovered/Resolved]
